FAERS Safety Report 6913058-2 (Version None)
Quarter: 2010Q3

REPORT INFORMATION
  Report Type: 
  Country: None (occurrence: None)
  Receive Date: 20100806
  Receipt Date: 20100728
  Transmission Date: 20110219
  Serious: Yes (Life-Threatening, Hospitalization)
  Sender: FDA-Public Use
  Company Number: IE-ABBOTT-10P-229-0643899-00

PATIENT
  Age: 38 Year
  Sex: Female

DRUGS (4)
  1. VALPROATE SODIUM [Suspect]
     Indication: BIPOLAR DISORDER
     Dosage: UNKNOWN; ONCE
     Route: 048
     Dates: start: 20100305, end: 20100305
  2. VALPROATE SODIUM [Suspect]
     Indication: INTENTIONAL OVERDOSE
     Dosage: DAILY
     Route: 048
     Dates: start: 20090701
  3. VALPROATE SODIUM [Suspect]
     Indication: SUICIDE ATTEMPT
  4. ARIPIPRAZOLE [Concomitant]
     Indication: PRODUCT USED FOR UNKNOWN INDICATION

REACTIONS (3)
  - INTENTIONAL OVERDOSE [None]
  - SUICIDAL IDEATION [None]
  - WHITE BLOOD CELL COUNT INCREASED [None]
